FAERS Safety Report 9624274 (Version 4)
Quarter: 2013Q4

REPORT INFORMATION
  Report Type: Spontaneous
  Country: US (occurrence: US)
  Receive Date: 20131015
  Receipt Date: 20131122
  Transmission Date: 20140711
  Serious: Yes (Other)
  Sender: FDA-Public Use
  Company Number: US-PFIZER INC-2013295122

PATIENT
  Age: 59 Year
  Sex: Male
  Weight: 79.37 kg

DRUGS (14)
  1. LYRICA [Suspect]
     Indication: PERIPHERAL NERVE INJURY
     Dosage: 50 MG, 3X/DAY
     Route: 048
     Dates: start: 201301, end: 201310
  2. LYRICA [Suspect]
     Indication: PAIN
     Dosage: 75 MG, 2X/DAY
     Route: 048
     Dates: start: 2013, end: 2013
  3. LYRICA [Suspect]
     Indication: DIABETIC NEUROPATHY
  4. TRAMADOL [Concomitant]
     Dosage: 60 MG, 4X/DAY
  5. GABAPENTIN [Concomitant]
     Dosage: 600 MG, 4X/DAY
  6. SIMVASTATIN [Concomitant]
     Dosage: 20 MG, UNK
  7. CLOPIDOGREL [Concomitant]
     Dosage: 75 MG, 1X/DAY
  8. CLOPIDOGREL [Concomitant]
     Dosage: 75 MG, 1X/DAY
  9. GLIMEPIRIDE [Concomitant]
     Dosage: 4 MG, 2X/DAY
  10. METFORMIN [Concomitant]
     Dosage: 1000 MG, 2X/DAY
  11. JANUVIA [Concomitant]
     Dosage: 50 MG, 2X/DAY
  12. ASPIRIN [Concomitant]
     Dosage: 81 MG, UNK
  13. ZOCOR [Concomitant]
     Dosage: UNK
  14. CODEINE [Concomitant]
     Indication: PAIN
     Dosage: UNK

REACTIONS (8)
  - Suicidal ideation [Unknown]
  - Diabetes mellitus [Unknown]
  - Diabetic neuropathy [Unknown]
  - Pain [Not Recovered/Not Resolved]
  - Sensation of heaviness [Unknown]
  - Swelling [Unknown]
  - Local swelling [Unknown]
  - Hypoaesthesia [Unknown]
